FAERS Safety Report 18379512 (Version 1)
Quarter: 2020Q4

REPORT INFORMATION
  Report Type: Spontaneous
  Country: HU (occurrence: HU)
  Receive Date: 20201013
  Receipt Date: 20201013
  Transmission Date: 20210114
  Serious: Yes (Death, Disabling, Other)
  Sender: FDA-Public Use
  Company Number: HU-JNJFOC-A-CH2019-186076

PATIENT
  Age: 61 Year
  Sex: Male
  Weight: 60 kg

DRUGS (1)
  1. ZAVESCA [Suspect]
     Active Substance: MIGLUSTAT
     Indication: NIEMANN-PICK DISEASE
     Dosage: 200 MG, TID
     Route: 048
     Dates: start: 20170202, end: 20190129

REACTIONS (4)
  - Superinfection bacterial [Unknown]
  - Upper limb fracture [Recovered/Resolved with Sequelae]
  - Death [Fatal]
  - Parkinsonism [Recovering/Resolving]

NARRATIVE: CASE EVENT DATE: 2018
